FAERS Safety Report 9566049 (Version 1)
Quarter: 2013Q3

REPORT INFORMATION
  Report Type: Report from Study
  Country: US (occurrence: US)
  Receive Date: 20130930
  Receipt Date: 20130930
  Transmission Date: 20140515
  Serious: Yes (Hospitalization, Other)
  Sender: FDA-Public Use
  Company Number: US-ABBVIE-13P-163-1150721-00

PATIENT
  Sex: Female

DRUGS (11)
  1. HUMIRA [Suspect]
     Indication: PSORIATIC ARTHROPATHY
     Dates: end: 2009
  2. HUMIRA [Suspect]
  3. REMICADE [Suspect]
     Indication: PRODUCT USED FOR UNKNOWN INDICATION
     Dosage: ONE DOSE
     Dates: start: 2012, end: 2012
  4. KLONOPIN [Concomitant]
     Indication: STRESS
  5. ZYPREXA [Concomitant]
     Indication: DEPRESSION
  6. LAMOTRIGINE [Concomitant]
     Indication: DEPRESSION
  7. APLENZIN [Concomitant]
     Indication: AFFECTIVE DISORDER
  8. RESTORIL [Concomitant]
     Indication: INSOMNIA
  9. SYNTHROID [Concomitant]
     Indication: HYPOTHYROIDISM
     Dosage: 0.112MG DAILY
  10. DIOVAN [Concomitant]
     Indication: BLOOD PRESSURE
     Dosage: 80MG DAILY
  11. ENBREL [Concomitant]
     Indication: PRODUCT USED FOR UNKNOWN INDICATION
     Dates: start: 2009, end: 2012

REACTIONS (11)
  - Adverse drug reaction [Unknown]
  - Lung neoplasm malignant [Recovered/Resolved]
  - Hospitalisation [Unknown]
  - Arthralgia [Not Recovered/Not Resolved]
  - Groin pain [Not Recovered/Not Resolved]
  - Bursitis [Not Recovered/Not Resolved]
  - Somnolence [Unknown]
  - Osteoarthritis [Not Recovered/Not Resolved]
  - Myalgia [Not Recovered/Not Resolved]
  - Fatigue [Not Recovered/Not Resolved]
  - Depression [Not Recovered/Not Resolved]
